FAERS Safety Report 9510524 (Version 1)
Quarter: 2013Q3

REPORT INFORMATION
  Report Type: Report from Study
  Country: DE (occurrence: DE)
  Receive Date: 20130909
  Receipt Date: 20130909
  Transmission Date: 20140515
  Serious: Yes (Hospitalization)
  Sender: FDA-Public Use
  Company Number: DE-CELGENEUS-062-21880-13084000

PATIENT
  Age: 53 Year
  Sex: Male
  Weight: 99 kg

DRUGS (8)
  1. REVLIMID [Suspect]
     Indication: 5Q MINUS SYNDROME
     Dosage: 5 MILLIGRAM
     Route: 048
     Dates: start: 20120804
  2. PHENPROCOUMON [Concomitant]
     Indication: THROMBOSIS PROPHYLAXIS
     Dosage: 3 MILLIGRAM
     Route: 048
     Dates: start: 20130808
  3. PANTOPRAZOLE [Concomitant]
     Indication: PROPHYLAXIS
     Dosage: 40 MILLIGRAM
     Route: 048
  4. BISOPROLOL [Concomitant]
     Indication: HYPERTENSION
     Dosage: 10 MILLIGRAM
     Route: 048
     Dates: start: 2002
  5. LEVOTHYROXIN [Concomitant]
     Indication: HYPOTHYROIDISM
     Dosage: 100 MICROGRAM
     Route: 048
     Dates: start: 1992
  6. PREDNISOLONE [Concomitant]
     Indication: COLITIS ULCERATIVE
     Dosage: 20 MILLIGRAM
     Route: 048
     Dates: start: 201209
  7. MICARDIS PLUS [Concomitant]
     Indication: HYPERTENSION
     Dosage: 40/125
     Route: 048
     Dates: start: 2002
  8. MESALAZIN [Concomitant]
     Indication: COLITIS ULCERATIVE
     Dosage: 1 GRAM
     Route: 048
     Dates: start: 1989

REACTIONS (1)
  - Atrial flutter [Recovered/Resolved]
